FAERS Safety Report 6602527-0 (Version None)
Quarter: 2010Q1

REPORT INFORMATION
  Report Type: 
  Country: None (occurrence: None)
  Receive Date: 20100217
  Receipt Date: 20100208
  Transmission Date: 20100710
  Serious: Yes (Hospitalization)
  Sender: FDA-Public Use
  Company Number: 2010SP000410

PATIENT
  Age: 63 Year
  Sex: Female

DRUGS (9)
  1. LUNESTA [Suspect]
     Indication: INSOMNIA
     Dosage: 3 MG; HS; ORAL
     Route: 048
     Dates: start: 20070101
  2. LIPITOR (CON.) [Concomitant]
  3. BENICAR (CON.) [Concomitant]
  4. ASPIRIN /0002701/ (CON.) [Concomitant]
  5. PROTONIX  / 01263201/ (CON.) [Concomitant]
  6. LORAZEPAM (CON.) [Concomitant]
  7. VITAMIN D /00107901/ (CON.) [Concomitant]
  8. VICODIN (CON.) [Concomitant]
  9. PREV MEDS =UNKNOWN [Concomitant]

REACTIONS (5)
  - INFECTION [None]
  - OPEN WOUND [None]
  - SKIN LESION [None]
  - VASCULAR BYPASS DYSFUNCTION [None]
  - VISION BLURRED [None]
